FAERS Safety Report 10481063 (Version 1)
Quarter: 2014Q3

REPORT INFORMATION
  Report Type: Spontaneous
  Country: US (occurrence: US)
  Receive Date: 20140929
  Receipt Date: 20140929
  Transmission Date: 20150326
  Serious: No
  Sender: FDA-Public Use
  Company Number: US-PFIZER INC-2014267861

PATIENT
  Age: 57 Year
  Sex: Female
  Weight: 113 kg

DRUGS (1)
  1. CHANTIX [Suspect]
     Active Substance: VARENICLINE TARTRATE
     Indication: SMOKING CESSATION THERAPY
     Dosage: UNK
     Dates: start: 20140923

REACTIONS (2)
  - Abnormal dreams [Unknown]
  - Nightmare [Unknown]

NARRATIVE: CASE EVENT DATE: 201409
